FAERS Safety Report 21405636 (Version 2)
Quarter: 2022Q4

REPORT INFORMATION
  Report Type: Spontaneous
  Country: US (occurrence: US)
  Receive Date: 20221004
  Receipt Date: 20221021
  Transmission Date: 20230113
  Serious: No
  Sender: FDA-Public Use
  Company Number: US-ORGANON-O2209USA001766

PATIENT
  Age: 20 Year
  Sex: Female
  Weight: 70.295 kg

DRUGS (1)
  1. NEXPLANON [Suspect]
     Active Substance: ETONOGESTREL
     Indication: Contraception
     Dosage: 1 IMPLANT OF 68 MILLIGRAM;LEFT UPPER ARM
     Dates: start: 20220919

REACTIONS (5)
  - Complication of device insertion [Unknown]
  - Device placement issue [Unknown]
  - Complication associated with device [Unknown]
  - Product quality issue [Unknown]
  - Wrong technique in device usage process [Unknown]

NARRATIVE: CASE EVENT DATE: 20220919
